FAERS Safety Report 10413503 (Version 1)
Quarter: 2014Q3

REPORT INFORMATION
  Report Type: Spontaneous
  Country: NO (occurrence: NO)
  Receive Date: 20140827
  Receipt Date: 20140827
  Transmission Date: 20150326
  Serious: Yes (Disabling)
  Sender: FDA-Public Use
  Company Number: NO-BAXTER-2014BAX049772

PATIENT
  Age: 23 Year
  Sex: Male

DRUGS (20)
  1. DEXAMETHASONE. [Suspect]
     Active Substance: DEXAMETHASONE
     Indication: PRODUCT USED FOR UNKNOWN INDICATION
     Dosage: ACCORDING TO THE NOPHO-ALL 2000 PROTOCOL
     Route: 048
     Dates: start: 20071031, end: 2009
  2. VINCRISTINE [Suspect]
     Active Substance: VINCRISTINE
     Indication: T-CELL TYPE ACUTE LEUKAEMIA
     Dosage: DAY 47 OF FIRST LSA2L2 CYCLE
     Route: 042
     Dates: start: 20080713, end: 20080713
  3. ONCOVIN [Suspect]
     Active Substance: VINCRISTINE SULFATE
     Indication: T-CELL TYPE ACUTE LEUKAEMIA
     Dosage: ACCORDING TO THE NOPHO-ALL 2000 PROTOCOL
     Route: 042
     Dates: start: 20070425, end: 2009
  4. CYTARABINE. [Suspect]
     Active Substance: CYTARABINE
     Indication: T-CELL TYPE ACUTE LEUKAEMIA
     Dosage: ACCORDING TO THE NOPHO-ALL 2000 PROTOCOL
     Route: 042
     Dates: start: 20070615, end: 20071214
  5. METHOTREXATE SODIUM. [Suspect]
     Active Substance: METHOTREXATE SODIUM
     Indication: PANCYTOPENIA
  6. CYTOSAR [Suspect]
     Active Substance: CYTARABINE
     Indication: T-CELL TYPE ACUTE LEUKAEMIA
     Dosage: ACCORDING TO THE NOPHO-ALL 2000 PROTOCOL
     Route: 042
     Dates: start: 20070713, end: 20080903
  7. DOXORUBICIN HYDROCHLORIDE. [Suspect]
     Active Substance: DOXORUBICIN HYDROCHLORIDE
     Indication: T-CELL TYPE ACUTE LEUKAEMIA
     Dosage: ACCORDING TO NOPHO-ALL 2000 PROTOCOL
     Route: 042
     Dates: start: 20070425, end: 20071114
  8. METHOTREXATE SODIUM. [Suspect]
     Active Substance: METHOTREXATE SODIUM
     Indication: T-CELL TYPE ACUTE LEUKAEMIA
     Dosage: ACCORDING TO NOPHO-ALL 2000 PROTOCOL
     Route: 065
     Dates: start: 20070425, end: 2009
  9. DAUNORUBICIN [Suspect]
     Active Substance: DAUNORUBICIN
     Indication: T-CELL TYPE ACUTE LEUKAEMIA
     Dosage: ACCORDING TO THE NOPHO-ALL 2000 PROTOCOL
     Route: 042
     Dates: start: 20080616, end: 20080811
  10. PURINETHOL [Suspect]
     Active Substance: MERCAPTOPURINE
     Indication: T-CELL TYPE ACUTE LEUKAEMIA
     Dosage: DAY 1-45 OF THE NOPHO-ALL 2000 PROTOCOL
     Route: 065
     Dates: start: 20080213
  11. PREDNISOLONE. [Suspect]
     Active Substance: PREDNISOLONE
     Dosage: 65 MG + 50 MG CONT. FOR SIX WEEKS
     Route: 065
     Dates: start: 20070425
  12. HYDROXYUREA. [Suspect]
     Active Substance: HYDROXYUREA
     Indication: T-CELL TYPE ACUTE LEUKAEMIA
     Dosage: DAY 15-18 OF FIRST LSA2L2 CYCLE IN NOPHO-ALL 2000 PROTOCOL
     Route: 065
     Dates: start: 20080611, end: 20080614
  13. CARMUSTINE [Suspect]
     Active Substance: CARMUSTINE
     Indication: T-CELL TYPE ACUTE LEUKAEMIA
     Dosage: ACOORDING TO THE NOPHO-ALL 2000 PROTOCOL
     Route: 065
     Dates: start: 20080630, end: 20080825
  14. LANVIS [Suspect]
     Active Substance: THIOGUANINE ANHYDROUS
     Indication: T-CELL TYPE ACUTE LEUKAEMIA
     Dosage: ACCORDING TO THE NOPHO-ALL 2000 PROTOCOL
     Route: 048
     Dates: start: 20070613, end: 20080723
  15. CYTARABINE. [Suspect]
     Active Substance: CYTARABINE
     Indication: T-CELL TYPE ACUTE LEUKAEMIA
  16. ASPARAGINASE [Suspect]
     Active Substance: ASPARAGINASE
     Indication: T-CELL TYPE ACUTE LEUKAEMIA
     Dosage: ACCORDING TO THE NOPHO-ALL 2000 PROTOCOL
     Route: 030
     Dates: start: 20070531, end: 20071031
  17. SENDOXAN 1000 MG PULVER TIL INJEKSJONSV?SKE, OPPL?SNING [Suspect]
     Active Substance: CYCLOPHOSPHAMIDE
     Indication: T-CELL TYPE ACUTE LEUKAEMIA
     Dosage: ACCORDING TO THE NOPHO-ALL 2000 PROTOCOL
     Route: 042
     Dates: start: 20070613, end: 20070711
  18. PURINETHOL [Suspect]
     Active Substance: MERCAPTOPURINE
     Indication: PANCYTOPENIA
     Route: 065
     Dates: start: 20080924, end: 2009
  19. PREDNISOLONE. [Suspect]
     Active Substance: PREDNISOLONE
     Indication: T-CELL TYPE ACUTE LEUKAEMIA
     Route: 065
     Dates: start: 20070420, end: 20070424
  20. PREDNISOLONE. [Suspect]
     Active Substance: PREDNISOLONE
     Dosage: 65 MG + 50 MG CONT. FOR SIX WEEKS
     Route: 065
     Dates: start: 20070425

REACTIONS (2)
  - Osteonecrosis [Not Recovered/Not Resolved]
  - Deafness bilateral [Not Recovered/Not Resolved]

NARRATIVE: CASE EVENT DATE: 20120906
